FAERS Safety Report 8121521-4 (Version None)
Quarter: 2012Q1

REPORT INFORMATION
  Report Type: 
  Country: None (occurrence: None)
  Receive Date: 20120203
  Receipt Date: 20120124
  Transmission Date: 20120608
  Serious: Yes (Hospitalization)
  Sender: FDA-Public Use
  Company Number: A0963365A

PATIENT
  Age: 79 Year
  Sex: Male

DRUGS (5)
  1. NATEGLINIDE [Concomitant]
  2. ROSIGLITAZONE MALEATE [Suspect]
     Indication: PRODUCT CONTAMINATION
     Dosage: 4.5 MG DAY
  3. GLIMEPIRIDE [Suspect]
     Indication: PRODUCT CONTAMINATION
     Dosage: 8.2 MG/DAY
  4. CHINESE MEDICATION (FORMULATION UNKNOWN) (CHINESE MEDICATION) [Suspect]
     Indication: NUTRITIONAL SUPPORT
  5. CHINESE MEDICATION (FORMULATION UNKNOWN) (CHINESE MEDICATION) [Suspect]
     Indication: NUTRITIONAL SUPPORT

REACTIONS (5)
  - ACCIDENTAL OVERDOSE [None]
  - ALTERED STATE OF CONSCIOUSNESS [None]
  - HYPOGLYCAEMIA [None]
  - PRODUCT CONTAMINATION [None]
  - DEPRESSED LEVEL OF CONSCIOUSNESS [None]
